FAERS Safety Report 21436174 (Version 1)
Quarter: 2022Q4

REPORT INFORMATION
  Report Type: Report from Study
  Country: US (occurrence: US)
  Receive Date: 20221010
  Receipt Date: 20221010
  Transmission Date: 20230112
  Serious: Yes (Hospitalization)
  Sender: FDA-Public Use
  Company Number: US-EXELIXIS-CABO-22055167

PATIENT
  Sex: Female

DRUGS (2)
  1. CABOMETYX [Suspect]
     Active Substance: CABOZANTINIB S-MALATE
     Indication: Nasal sinus cancer
     Dosage: 60 MG (BREAKING THE TABLETS IN HALF)
  2. CABOMETYX [Suspect]
     Active Substance: CABOZANTINIB S-MALATE
     Dosage: 60 MG, QD
     Dates: start: 20220829

REACTIONS (7)
  - Diverticulitis [Unknown]
  - Rectal haemorrhage [Unknown]
  - Blood pressure decreased [Recovered/Resolved]
  - Decreased appetite [Unknown]
  - Gingival cancer [Unknown]
  - Wrong technique in product usage process [Unknown]
  - Off label use [Unknown]
